FAERS Safety Report 16320693 (Version 1)
Quarter: 2019Q2

REPORT INFORMATION
  Report Type: Spontaneous
  Country: IT (occurrence: IT)
  Receive Date: 20190516
  Receipt Date: 20190516
  Transmission Date: 20190711
  Serious: Yes (Other)
  Sender: FDA-Public Use
  Company Number: IT-MYLANLABS-2019M1045825

PATIENT
  Age: 5 Year
  Sex: Male

DRUGS (1)
  1. TRIAZOLAM. [Suspect]
     Active Substance: TRIAZOLAM
     Indication: PRODUCT USED FOR UNKNOWN INDICATION
     Dosage: 0.5 MILLIGRAM, TOTAL
     Dates: start: 20180818, end: 20180818

REACTIONS (3)
  - Toxicity to various agents [Recovering/Resolving]
  - Asthenia [Recovering/Resolving]
  - Accidental exposure to product by child [Unknown]

NARRATIVE: CASE EVENT DATE: 20180818
